FAERS Safety Report 8558345-X (Version None)
Quarter: 2012Q3

REPORT INFORMATION
  Report Type: 
  Country: None (occurrence: None)
  Receive Date: 20120801
  Receipt Date: 20120726
  Transmission Date: 20120928
  Serious: Yes (Other)
  Sender: FDA-Public Use
  Company Number: PL-ABBOTT-12P-129-0960847-00

PATIENT
  Age: 59 Year
  Sex: Male

DRUGS (4)
  1. OLANZAPINE [Suspect]
     Indication: BIPOLAR DISORDER
  2. VALPROIC ACID [Suspect]
     Indication: BIPOLAR DISORDER
  3. LITHIUM CARBONATE [Interacting]
     Indication: BIPOLAR DISORDER
     Route: 048
  4. ARIPIPRAZOLE [Interacting]
     Indication: BIPOLAR DISORDER
     Dosage: DAILY

REACTIONS (4)
  - NEUROLEPTIC MALIGNANT SYNDROME [None]
  - TOXICITY TO VARIOUS AGENTS [None]
  - DRUG INTERACTION [None]
  - DRUG INEFFECTIVE [None]
